FAERS Safety Report 24251305 (Version 2)
Quarter: 2024Q3

REPORT INFORMATION
  Report Type: Report from Study
  Country: CA (occurrence: CA)
  Receive Date: 20240826
  Receipt Date: 20240925
  Transmission Date: 20241016
  Serious: Yes (Hospitalization, Other)
  Sender: HLS THERAPEUTICS
  Company Number: CA-HLS-202402121

PATIENT
  Age: 35 Year
  Sex: Male

DRUGS (1)
  1. CLOZARIL [Suspect]
     Active Substance: CLOZAPINE
     Indication: Product used for unknown indication
     Route: 048
     Dates: start: 20211203

REACTIONS (8)
  - Blood pressure decreased [Unknown]
  - C-reactive protein increased [Unknown]
  - Hyponatraemia [Unknown]
  - Left atrial enlargement [Unknown]
  - Tachycardia [Unknown]
  - Troponin increased [Unknown]
  - Colitis ulcerative [Unknown]
  - White blood cell count increased [Unknown]

NARRATIVE: CASE EVENT DATE: 20240815
